FAERS Safety Report 15990336 (Version 1)
Quarter: 2019Q1

REPORT INFORMATION
  Report Type: Spontaneous
  Country: US (occurrence: US)
  Receive Date: 20190221
  Receipt Date: 20190221
  Transmission Date: 20190418
  Serious: No
  Sender: FDA-Public Use
  Company Number: None

PATIENT
  Age: 28 Year
  Sex: Female
  Weight: 49.5 kg

DRUGS (5)
  1. VITAMIN D3 [Concomitant]
     Active Substance: CHOLECALCIFEROL
  2. AVIANE [Concomitant]
     Active Substance: ETHINYL ESTRADIOL\LEVONORGESTREL
  3. AMOXICILLIN. [Concomitant]
     Active Substance: AMOXICILLIN
  4. VORICONAZOLE TABLETS [Suspect]
     Active Substance: VORICONAZOLE
     Indication: CANDIDA INFECTION
     Dosage: ?          QUANTITY:1 TABLET(S);?
     Route: 048
  5. IGG INFUSION [Concomitant]

REACTIONS (2)
  - Parosmia [None]
  - Hypoaesthesia oral [None]

NARRATIVE: CASE EVENT DATE: 20190219
